FAERS Safety Report 24060853 (Version 2)
Quarter: 2024Q4

REPORT INFORMATION
  Report Type: Spontaneous
  Country: US (occurrence: None)
  Receive Date: 20240708
  Receipt Date: 20241018
  Transmission Date: 20250115
  Serious: Yes (Hospitalization, Other)
  Sender: MDD OPERATIONS
  Company Number: US-MDD US Operations-MDD202406-002275

PATIENT
  Age: 78 Year
  Sex: Male
  Weight: 120.65 kg

DRUGS (14)
  1. APOKYN [Suspect]
     Active Substance: APOMORPHINE HYDROCHLORIDE
     Indication: Parkinson^s disease
  2. APOKYN [Suspect]
     Active Substance: APOMORPHINE HYDROCHLORIDE
     Dosage: 30MG/3ML AS ORDERED
     Route: 058
  3. ONGENTYS [Concomitant]
     Active Substance: OPICAPONE
     Dosage: 50 MG
  4. LASIX [Concomitant]
     Active Substance: FUROSEMIDE
     Dosage: 40MG
  5. POTASSIUM [Concomitant]
     Active Substance: POTASSIUM
     Dosage: 7.5 ML
  6. ENALAPRIL [Concomitant]
     Active Substance: ENALAPRIL
     Dosage: 10 MG
  7. ALLOPURINOL [Concomitant]
     Active Substance: ALLOPURINOL
     Dosage: 100 MG
  8. XARELTO [Concomitant]
     Active Substance: RIVAROXABAN
     Dosage: 20 MG
  9. PRAVASTATIN [Concomitant]
     Active Substance: PRAVASTATIN
     Dosage: 20 MG
  10. CARBIDOPA\LEVODOPA [Concomitant]
     Active Substance: CARBIDOPA\LEVODOPA
     Dosage: EACH DF CONTAINS 25/100 MG
  11. TAMSULOSIN [Concomitant]
     Active Substance: TAMSULOSIN
     Dosage: 0.4 MG
  12. FINASTERIDE [Concomitant]
     Active Substance: FINASTERIDE
     Dosage: 5 MG
  13. VITAMIN D3 [Concomitant]
     Active Substance: CHOLECALCIFEROL
     Dosage: 2000 IU
  14. COLACE [Concomitant]
     Active Substance: DOCUSATE SODIUM
     Dosage: 100 MG

REACTIONS (2)
  - Oesophageal carcinoma [Unknown]
  - Neoplasm malignant [Unknown]

NARRATIVE: CASE EVENT DATE: 20241014
